FAERS Safety Report 25135637 (Version 5)
Quarter: 2025Q3

REPORT INFORMATION
  Report Type: Report from Study
  Country: MX (occurrence: MX)
  Receive Date: 20250328
  Receipt Date: 20250815
  Transmission Date: 20251021
  Serious: Yes (Other)
  Sender: DAIICHI
  Company Number: MX-AstraZeneca-CH-00831547A

PATIENT
  Age: 62 Year
  Sex: Female
  Weight: 55 kg

DRUGS (3)
  1. ENHERTU [Suspect]
     Active Substance: FAM-TRASTUZUMAB DERUXTECAN-NXKI
     Indication: HER2 positive breast cancer
     Dosage: 350 MG, ONCE EVERY 3 WK
     Route: 042
     Dates: start: 20250120
  2. ENHERTU [Suspect]
     Active Substance: FAM-TRASTUZUMAB DERUXTECAN-NXKI
     Indication: Breast cancer metastatic
     Dosage: 350 MG, ONCE EVERY 3 WK
     Route: 042
     Dates: start: 20250725
  3. ROSUVASTATIN [Concomitant]
     Active Substance: ROSUVASTATIN
     Indication: Cardiovascular event prophylaxis
     Dosage: 10 MG, QD
     Route: 065

REACTIONS (22)
  - Herpes zoster [Recovered/Resolved]
  - Pneumonitis [Recovered/Resolved]
  - Diarrhoea [Recovered/Resolved]
  - Dizziness [Unknown]
  - Weight decreased [Recovered/Resolved]
  - Electrolyte imbalance [Recovered/Resolved]
  - Anxiety [Unknown]
  - Asthenia [Unknown]
  - Productive cough [Unknown]
  - Dysphonia [Unknown]
  - Dry mouth [Unknown]
  - Sleep disorder [Recovering/Resolving]
  - Eating disorder [Unknown]
  - Hiccups [Unknown]
  - Nausea [Unknown]
  - Cough [Unknown]
  - Hyperhidrosis [Unknown]
  - Vomiting [Unknown]
  - Dyspepsia [Unknown]
  - Blood iron decreased [Unknown]
  - Cystitis noninfective [Recovered/Resolved]
  - Glomerular filtration rate decreased [Unknown]

NARRATIVE: CASE EVENT DATE: 20250205
